FAERS Safety Report 9217841 (Version 1)
Quarter: 2013Q2

REPORT INFORMATION
  Report Type: Report from Study
  Country: TW (occurrence: TW)
  Receive Date: 20130408
  Receipt Date: 20130408
  Transmission Date: 20140414
  Serious: Yes (Hospitalization)
  Sender: FDA-Public Use
  Company Number: TW-009507513-2011SP049652

PATIENT
  Age: 45 Year
  Sex: Male
  Weight: 80 kg

DRUGS (4)
  1. ASENAPINE MALEATE-SCHIZOPHRENIA [Suspect]
     Indication: SCHIZOPHRENIA
     Dosage: 10 MG, BID
     Route: 060
     Dates: start: 20111018, end: 20111021
  2. ASENAPINE MALEATE-SCHIZOPHRENIA [Suspect]
     Dosage: UNK
     Route: 060
  3. LORAZEPAM [Concomitant]
     Indication: INSOMNIA
     Dosage: DOSE: 2-3 MILLIGRAMS; UPDATE (06DEC2011): START DATE, STOP DATE, FREQUENCY
     Route: 048
     Dates: start: 20110905, end: 20111021
  4. ZOPICLONE [Concomitant]
     Indication: INSOMNIA
     Dosage: 7.5 MG, HS
     Route: 048
     Dates: start: 20110907, end: 20110926

REACTIONS (1)
  - Schizophrenia [Recovered/Resolved]
